FAERS Safety Report 7797603-3 (Version None)
Quarter: 2011Q4

REPORT INFORMATION
  Report Type: 
  Country: None (occurrence: None)
  Receive Date: 20111005
  Receipt Date: 20110923
  Transmission Date: 20120403
  Serious: Yes (Other)
  Sender: FDA-Public Use
  Company Number: CN-ELI_LILLY_AND_COMPANY-CN201108003635

PATIENT
  Age: 70 Year
  Sex: Male

DRUGS (5)
  1. DEXAMETHASONE [Concomitant]
     Indication: PREMEDICATION
     Dosage: 4 MG, QD
     Dates: start: 20110802, end: 20110804
  2. FOLIC ACID [Concomitant]
     Indication: PREMEDICATION
     Dosage: 400 UG, UNKNOWN
  3. CISPLATIN [Concomitant]
     Indication: LUNG ADENOCARCINOMA
     Dosage: 120 MG, SINGLE
     Route: 042
     Dates: start: 20110803, end: 20110803
  4. VITAMIN B-12 [Concomitant]
     Indication: PREMEDICATION
     Dosage: 1000 UG, UNKNOWN
  5. ALIMTA [Suspect]
     Indication: LUNG ADENOCARCINOMA
     Dosage: 900 MG, SINGLE
     Route: 042
     Dates: start: 20110803, end: 20110803

REACTIONS (3)
  - COUNTERFEIT DRUG ADMINISTERED [None]
  - ESCHERICHIA TEST POSITIVE [None]
  - WHITE BLOOD CELL COUNT DECREASED [None]
